FAERS Safety Report 7049280-7 (Version None)
Quarter: 2010Q4

REPORT INFORMATION
  Report Type: 
  Country: None (occurrence: None)
  Receive Date: 20101018
  Receipt Date: 20101014
  Transmission Date: 20110411
  Serious: Yes (Other)
  Sender: FDA-Public Use
  Company Number: HU-ROCHE-725336

PATIENT

DRUGS (3)
  1. RIBAVIRIN [Suspect]
     Dosage: DOSE:10.6 MG/BODY WEIGHT KG/DIE
     Route: 065
  2. PEGINTERFERON ALFA-2A [Suspect]
     Dosage: DOSE:180 UG/WEEK.
     Route: 058
  3. PEG-INTRON [Suspect]
     Dosage: DOSE:1.5 UG/BODY WEIGHT KG/WEEK.NO
     Route: 058

REACTIONS (4)
  - ANGINA PECTORIS [None]
  - ATRIAL FIBRILLATION [None]
  - DEPRESSION [None]
  - PULMONARY FIBROSIS [None]
